FAERS Safety Report 6220873-X (Version None)
Quarter: 2009Q2

REPORT INFORMATION
  Report Type: 
  Country: None (occurrence: None)
  Receive Date: 20090610
  Receipt Date: 20090529
  Transmission Date: 20091009
  Serious: Yes (Hospitalization, Other)
  Sender: FDA-Public Use
  Company Number: PHHY2009BR21184

PATIENT
  Age: 54 Year
  Sex: Male

DRUGS (1)
  1. STARFORM [Suspect]
     Indication: DIABETES MELLITUS
     Dosage: 120/850 MG

REACTIONS (2)
  - DIABETES MELLITUS [None]
  - RENAL ARTERY OCCLUSION [None]
